FAERS Safety Report 11145660 (Version 1)
Quarter: 2015Q2

REPORT INFORMATION
  Report Type: Spontaneous
  Country: IT (occurrence: None)
  Receive Date: 20150526
  Receipt Date: 20150526
  Transmission Date: 20150821
  Serious: Yes (Death, Hospitalization)
  Sender: FDA-Public Use
  Company Number: IT-ZYDUS-008120

PATIENT
  Age: 86 Year
  Sex: Female

DRUGS (1)
  1. CLOPIDOGREL [Suspect]
     Active Substance: CLOPIDOGREL BISULFATE
     Indication: ATRIAL FIBRILLATION
     Route: 048
     Dates: start: 20141128, end: 20150121

REACTIONS (2)
  - Thrombocytopenia [None]
  - Leukopenia [None]

NARRATIVE: CASE EVENT DATE: 20150121
